FAERS Safety Report 7232108-X (Version None)
Quarter: 2011Q1

REPORT INFORMATION
  Report Type: 
  Country: None (occurrence: None)
  Receive Date: 20110119
  Receipt Date: 20110108
  Transmission Date: 20110831
  Serious: Yes (Other)
  Sender: FDA-Public Use
  Company Number: US-PAR PHARMACEUTICAL, INC-2011SCPR002631

PATIENT
  Sex: Female

DRUGS (1)
  1. MEGACE ES [Suspect]
     Indication: WEIGHT INCREASED
     Dosage: UNK
     Route: 048

REACTIONS (3)
  - GENERALISED OEDEMA [None]
  - ARTHRALGIA [None]
  - HYPOTHALAMO-PITUITARY DISORDER [None]
